FAERS Safety Report 24325385 (Version 1)
Quarter: 2024Q3

REPORT INFORMATION
  Report Type: Report from Study
  Country: CA (occurrence: CA)
  Receive Date: 20240916
  Receipt Date: 20240916
  Transmission Date: 20241017
  Serious: Yes (Other)
  Sender: CURRAX PHARMACEUTICALS
  Company Number: CA-BAUSCH-BL-2024-002902

PATIENT
  Sex: Male
  Weight: 142.86 kg

DRUGS (11)
  1. CONTRAVE [Suspect]
     Active Substance: BUPROPION HYDROCHLORIDE\NALTREXONE HYDROCHLORIDE
     Indication: Weight control
     Dosage: 90/8 MG
     Route: 048
     Dates: start: 20240202, end: 202402
  2. CONTRAVE [Suspect]
     Active Substance: BUPROPION HYDROCHLORIDE\NALTREXONE HYDROCHLORIDE
     Dosage: 90/8 MG, 3 TABLETS/DAY
     Route: 048
     Dates: start: 202402, end: 20240222
  3. CONTRAVE [Suspect]
     Active Substance: BUPROPION HYDROCHLORIDE\NALTREXONE HYDROCHLORIDE
     Dosage: 90/8MG, (2:2 BID) (2 DOSAGE FORMS,1 IN 12 HR)
     Route: 048
     Dates: start: 20240223, end: 2024
  4. CONTRAVE [Suspect]
     Active Substance: BUPROPION HYDROCHLORIDE\NALTREXONE HYDROCHLORIDE
     Dosage: 90/8MG
     Route: 048
     Dates: start: 2024, end: 2024
  5. CONTRAVE [Suspect]
     Active Substance: BUPROPION HYDROCHLORIDE\NALTREXONE HYDROCHLORIDE
     Dosage: 90/8MG, INCREASING DOSE BACK TO THE PRESCRIBED AMOUNT (2:2) (2 DOSAGE FORMS,1 IN 12 HR)
     Route: 048
     Dates: start: 2024, end: 2024
  6. CONTRAVE [Suspect]
     Active Substance: BUPROPION HYDROCHLORIDE\NALTREXONE HYDROCHLORIDE
     Dosage: 90/8MG, (WEANING DOWN)
     Route: 048
     Dates: start: 2024, end: 2024
  7. CONTRAVE [Suspect]
     Active Substance: BUPROPION HYDROCHLORIDE\NALTREXONE HYDROCHLORIDE
     Dosage: 90/8 MG, 1 TAB/DAY
     Route: 048
     Dates: start: 2024, end: 2024
  8. CONTRAVE [Suspect]
     Active Substance: BUPROPION HYDROCHLORIDE\NALTREXONE HYDROCHLORIDE
     Dosage: 90/8 MG
     Route: 048
     Dates: start: 2024, end: 20240506
  9. CONTRAVE [Suspect]
     Active Substance: BUPROPION HYDROCHLORIDE\NALTREXONE HYDROCHLORIDE
     Dosage: 90/8 MG, 3 TAB/DAY
     Route: 048
     Dates: start: 20240507, end: 20240513
  10. CONTRAVE [Suspect]
     Active Substance: BUPROPION HYDROCHLORIDE\NALTREXONE HYDROCHLORIDE
     Dosage: 90/8 MG, 4 TAB/DAY
     Route: 048
     Dates: start: 20240514, end: 2024
  11. CONTRAVE [Suspect]
     Active Substance: BUPROPION HYDROCHLORIDE\NALTREXONE HYDROCHLORIDE
     Dosage: 90/8 MG, 1 TAB/DAY
     Route: 048
     Dates: start: 2024, end: 20240902

REACTIONS (10)
  - Tooth disorder [Unknown]
  - Bronchitis [Recovered/Resolved]
  - Headache [Not Recovered/Not Resolved]
  - Nausea [Recovered/Resolved]
  - Inability to afford medication [Unknown]
  - Insurance issue [Unknown]
  - Intentional underdose [Unknown]
  - Product dose omission in error [Unknown]
  - Patient dissatisfaction with treatment [Unknown]
  - Intentional product use issue [Unknown]

NARRATIVE: CASE EVENT DATE: 20240101
